FAERS Safety Report 6132617-0 (Version None)
Quarter: 2009Q1

REPORT INFORMATION
  Report Type: 
  Country: None (occurrence: None)
  Receive Date: 20090324
  Receipt Date: 20090310
  Transmission Date: 20090719
  Serious: Yes (Hospitalization)
  Sender: FDA-Public Use
  Company Number: 2009000750

PATIENT
  Age: 80 Year
  Sex: Male

DRUGS (6)
  1. ERLOTINIB (ERLOTINIB) (TABLET) (ERLOTINIB) [Suspect]
     Indication: NON-SMALL CELL LUNG CANCER
     Dosage: (150 MG, QD), ORAL
     Route: 048
     Dates: start: 20090113, end: 20090301
  2. BASEN (VOGLIBOSE) [Concomitant]
  3. AMARYL [Concomitant]
  4. PURSENNID (SENNA LEAF) [Concomitant]
  5. MAGMITT [Concomitant]
  6. OXYCONTIN [Concomitant]

REACTIONS (8)
  - BLOOD GLUCOSE DECREASED [None]
  - GASTRIC ULCER [None]
  - HAEMATEMESIS [None]
  - INTERSTITIAL LUNG DISEASE [None]
  - LOSS OF CONSCIOUSNESS [None]
  - METASTASES TO BONE [None]
  - METASTASES TO LUNG [None]
  - PLEURAL EFFUSION [None]
